FAERS Safety Report 18938103 (Version 2)
Quarter: 2021Q1

REPORT INFORMATION
  Report Type: Report from Study
  Country: AU (occurrence: AU)
  Receive Date: 20210225
  Receipt Date: 20210304
  Transmission Date: 20210420
  Serious: Yes (Death)
  Sender: FDA-Public Use
  Company Number: AU-PFIZER INC-2021193141

PATIENT
  Age: 53 Year
  Sex: Male

DRUGS (2)
  1. FLUCONAZOLE. [Suspect]
     Active Substance: FLUCONAZOLE
     Indication: CANDIDA INFECTION
     Dosage: 200 MG, QD (FOR 4 WEEKS) (ROUTE: UNKNOWN);
     Route: 065
  2. FLUCONAZOLE. [Suspect]
     Active Substance: FLUCONAZOLE
     Dosage: FROM AN UNKNOWN START DATE AT AN UNKNOWN DOSE, FOR 3 DAYS (ROUTE: UNKNOWN)
     Route: 065

REACTIONS (1)
  - Abdominal sepsis [Fatal]
